FAERS Safety Report 10224063 (Version 2)
Quarter: 2014Q2

REPORT INFORMATION
  Report Type: Report from Study
  Country: US (occurrence: US)
  Receive Date: 20140609
  Receipt Date: 20140609
  Transmission Date: 20141212
  Serious: Yes (Death, Life-Threatening, Hospitalization)
  Sender: FDA-Public Use
  Company Number: US-B.I. PHARMACEUTICALS,INC./RIDGEFIELD-2014-RU-00230BP

PATIENT
  Age: 79 Year
  Sex: Male
  Weight: 72.7 kg

DRUGS (8)
  1. DABIGATRAN [Suspect]
     Indication: CEREBROVASCULAR ACCIDENT PROPHYLAXIS
     Dosage: 150 MG
     Route: 048
     Dates: start: 20140310, end: 20140417
  2. DABIGATRAN [Suspect]
     Indication: ATRIAL FIBRILLATION
  3. AMIODARONE [Suspect]
     Indication: ATRIAL FIBRILLATION
     Dosage: 200 MG
     Route: 048
     Dates: start: 20140310
  4. COREG CR [Suspect]
     Indication: HYPERTENSION
     Dosage: 20 MG
     Route: 048
     Dates: start: 201308, end: 20140417
  5. COREG CR [Suspect]
     Indication: CARDIAC FAILURE CONGESTIVE
  6. KEPPRA [Concomitant]
     Indication: CONVULSION PROPHYLAXIS
     Dosage: 500 MG
     Route: 042
     Dates: start: 20140417, end: 20140417
  7. MANNITOL [Concomitant]
     Indication: BRAIN OEDEMA
     Dosage: 34 G
     Route: 042
     Dates: start: 20140417, end: 20140417
  8. ATROPINE [Concomitant]
     Indication: CARDIAC ARREST
     Dosage: 1 MG
     Route: 042
     Dates: start: 20140417, end: 20140417

REACTIONS (4)
  - Haemorrhage intracranial [Fatal]
  - Atrioventricular block complete [Recovered/Resolved]
  - Respiratory failure [Recovered/Resolved]
  - Skull fractured base [Not Recovered/Not Resolved]
